FAERS Safety Report 24009247 (Version 1)
Quarter: 2024Q2

REPORT INFORMATION
  Report Type: Spontaneous
  Country: US (occurrence: US)
  Receive Date: 20240625
  Receipt Date: 20240625
  Transmission Date: 20240715
  Serious: Yes (Other)
  Sender: FDA-Public Use
  Company Number: US-UCBSA-2024031784

PATIENT
  Sex: Female
  Weight: 64.853 kg

DRUGS (3)
  1. BIMZELX [Suspect]
     Active Substance: BIMEKIZUMAB-BKZX
     Indication: Seborrhoeic keratosis
     Dosage: 320 MILLIGRAM, EV 4 WEEKS (AT WEEK 8,12, AND 16 AS DIRECTED)
     Route: 058
     Dates: start: 202405
  2. BIMZELX [Suspect]
     Active Substance: BIMEKIZUMAB-BKZX
     Indication: Psoriasis
  3. BIMZELX [Suspect]
     Active Substance: BIMEKIZUMAB-BKZX
     Indication: Off label use

REACTIONS (2)
  - Ankle fracture [Unknown]
  - Off label use [Unknown]
